FAERS Safety Report 16373212 (Version 1)
Quarter: 2019Q2

REPORT INFORMATION
  Report Type: Report from Study
  Country: US (occurrence: US)
  Receive Date: 20190530
  Receipt Date: 20190530
  Transmission Date: 20190711
  Serious: Yes (Other)
  Sender: FDA-Public Use
  Company Number: US-GILEAD-2019-0410854

PATIENT
  Age: 72 Year
  Sex: Female

DRUGS (1)
  1. AZTREONAM LYSINE [Suspect]
     Active Substance: AZTREONAM LYSINE
     Indication: CYSTIC FIBROSIS
     Dosage: 1 DOSAGE FORM, TID, FOR 28 DAYS ON, 28 DAYS OFF
     Dates: start: 201702, end: 201904

REACTIONS (2)
  - Pneumonitis [Unknown]
  - Tachycardia [Unknown]

NARRATIVE: CASE EVENT DATE: 201904
